FAERS Safety Report 13704235 (Version 1)
Quarter: 2017Q2

REPORT INFORMATION
  Report Type: Report from Study
  Country: JP (occurrence: JP)
  Receive Date: 20170630
  Receipt Date: 20170630
  Transmission Date: 20170830
  Serious: Yes (Other)
  Sender: FDA-Public Use
  Company Number: JP-BRISTOL-MYERS SQUIBB COMPANY-BMS-2017-036142

PATIENT
  Age: 70 Year
  Sex: Male

DRUGS (1)
  1. NIVOLUMAB [Suspect]
     Active Substance: NIVOLUMAB
     Indication: MALIGNANT MELANOMA
     Dosage: 2 MG/KG, UNK
     Route: 041
     Dates: start: 20160927

REACTIONS (12)
  - Tumour haemorrhage [Recovered/Resolved]
  - Inappropriate schedule of drug administration [Unknown]
  - Nasal congestion [Not Recovered/Not Resolved]
  - Amylase increased [Recovered/Resolved]
  - Viral upper respiratory tract infection [Recovered/Resolved]
  - Constipation [Recovered/Resolved]
  - Bone marrow failure [Unknown]
  - Fall [Recovered/Resolved]
  - Abdominal pain [Recovered/Resolved]
  - Malaise [Recovered/Resolved]
  - White blood cell count decreased [Recovered/Resolved]
  - Neutrophil count decreased [Recovered/Resolved]

NARRATIVE: CASE EVENT DATE: 20161012
